FAERS Safety Report 9440479 (Version 3)
Quarter: 2014Q4

REPORT INFORMATION
  Report Type: Spontaneous
  Country: US (occurrence: None)
  Receive Date: 20130801
  Receipt Date: 20141124
  Transmission Date: 20150529
  Serious: Yes (Death, Other)
  Sender: FDA-Public Use
  Company Number: 20130347

PATIENT
  Age: 49 Year
  Sex: Male
  Weight: 120 kg

DRUGS (11)
  1. VENOFER [Suspect]
     Active Substance: IRON SUCROSE
     Indication: CHRONIC KIDNEY DISEASE
     Route: 042
     Dates: start: 20110525, end: 20110525
  2. ZEMPLAR [Concomitant]
     Active Substance: PARICALCITOL
  3. GRANUFLO [Suspect]
     Active Substance: ACETIC ACID\SODIUM ACETATE
  4. BLOODLINES [Concomitant]
  5. ACETAMINOPHEN. [Concomitant]
     Active Substance: ACETAMINOPHEN
  6. EPOGEN [Concomitant]
     Active Substance: ERYTHROPOIETIN
  7. 2008K HEMODIALYSIS SYSTEM [Suspect]
     Active Substance: DEVICE
  8. VENOFER [Suspect]
     Active Substance: IRON SUCROSE
     Indication: IRON DEFICIENCY ANAEMIA
     Route: 042
     Dates: start: 20110525, end: 20110525
  9. OPTIFLUX DIALYZER [Suspect]
     Active Substance: DEVICE
     Dosage: UNKNOWN
  10. HEPARIN-PORK [Concomitant]
  11. SALINE [Concomitant]
     Active Substance: SODIUM CHLORIDE

REACTIONS (6)
  - Resuscitation [None]
  - Arrhythmia [None]
  - Blood pressure decreased [None]
  - Cardiovascular disorder [None]
  - Unresponsive to stimuli [None]
  - Diarrhoea [None]

NARRATIVE: CASE EVENT DATE: 20110525
